FAERS Safety Report 4273785-5 (Version None)
Quarter: 2004Q1

REPORT INFORMATION
  Report Type: 
  Country: None (occurrence: None)
  Receive Date: 20040114
  Receipt Date: 20040105
  Transmission Date: 20041129
  Serious: Yes (Disabling)
  Sender: FDA-Public Use
  Company Number: 2004CG00009

PATIENT
  Age: 75 Year
  Sex: Female

DRUGS (2)
  1. XYLOCAINE [Suspect]
     Indication: ANAESTHESIA
     Dosage: 80 MG RNB
     Dates: start: 20020307, end: 20020307
  2. BUPIVACAINE [Suspect]
     Indication: ANAESTHESIA
     Dosage: 20 MG RNB
     Dates: start: 20020307, end: 20020307

REACTIONS (3)
  - ANAESTHETIC COMPLICATION [None]
  - DIPLOPIA [None]
  - OPHTHALMOPLEGIA [None]
